FAERS Safety Report 9735714 (Version 1)
Quarter: 2013Q4

REPORT INFORMATION
  Report Type: Spontaneous
  Country: US (occurrence: US)
  Receive Date: 20131206
  Receipt Date: 20131206
  Transmission Date: 20140711
  Serious: Yes (Death)
  Sender: FDA-Public Use
  Company Number: US-MERCK-1312USA001033

PATIENT
  Age: 67 Year
  Sex: Female

DRUGS (1)
  1. NOXAFIL [Suspect]
     Dosage: 200 MICROGRAM, QID
     Route: 048
     Dates: start: 20130116

REACTIONS (1)
  - Death [Fatal]
